FAERS Safety Report 8772755 (Version 1)
Quarter: 2012Q4

REPORT INFORMATION
  Report Type: 
  Country: DE (occurrence: DE)
  Receive Date: 20120911
  Receipt Date: 20120911
  Transmission Date: 20130627
  Serious: Yes (Hospitalization)
  Sender: FDA-Public Use
  Company Number: DE-ELI_LILLY_AND_COMPANY-DE201208009477

PATIENT
  Age: 49 Year
  Sex: Male
  Weight: 75 kg

DRUGS (2)
  1. EFIENT [Suspect]
     Indication: CORONARY ARTERY DISEASE
     Dosage: 10 mg, qd
     Route: 048
     Dates: start: 201004, end: 201207
  2. ASS [Concomitant]
     Dosage: 100 mg, unknown
     Route: 048
     Dates: start: 2003, end: 201207

REACTIONS (2)
  - Subdural haematoma [Not Recovered/Not Resolved]
  - Head injury [Not Recovered/Not Resolved]
